FAERS Safety Report 8443035-4 (Version None)
Quarter: 2012Q2

REPORT INFORMATION
  Report Type: 
  Country: None (occurrence: None)
  Receive Date: 20120615
  Receipt Date: 20120612
  Transmission Date: 20120825
  Serious: Yes (Other)
  Sender: FDA-Public Use
  Company Number: PHHY2012GB050204

PATIENT
  Age: 80 Year
  Sex: Male

DRUGS (6)
  1. BETAMETHASONE VALERATE [Suspect]
     Indication: PRURITUS
     Dosage: 1 DF, BID
     Dates: start: 20070101
  2. OMEPRAZOLE [Suspect]
  3. LIPITOR [Suspect]
  4. PROCHLORPERAZINE [Concomitant]
     Indication: VERTIGO
     Dates: start: 20070101
  5. PHENERGAN [Concomitant]
     Dosage: 1 DF, QD
  6. BETAMETHASONE [Suspect]
     Dosage: 1 DF, BID
     Dates: start: 20091201, end: 20100310

REACTIONS (16)
  - CEREBROVASCULAR ACCIDENT [None]
  - DERMATITIS ATOPIC [None]
  - RASH PUSTULAR [None]
  - EOSINOPHILIA [None]
  - MENTAL IMPAIRMENT [None]
  - CONSTIPATION [None]
  - PRURITUS [None]
  - HYPERSENSITIVITY [None]
  - ECZEMA [None]
  - INSOMNIA [None]
  - PROSTATOMEGALY [None]
  - MICTURITION DISORDER [None]
  - SKIN ULCER [None]
  - INFECTION [None]
  - BLOOD CHOLESTEROL INCREASED [None]
  - RASH PRURITIC [None]
